FAERS Safety Report 8776742 (Version 1)
Quarter: 2012Q4

REPORT INFORMATION
  Report Type: 
  Country: MX (occurrence: MX)
  Receive Date: 20120911
  Receipt Date: 20120911
  Transmission Date: 20130627
  Serious: Yes (Other)
  Sender: FDA-Public Use
  Company Number: MX-PFIZER INC-2012221251

PATIENT
  Age: 76 Year
  Sex: Female

DRUGS (2)
  1. CORDARONE [Suspect]
     Indication: PRODUCT USED FOR UNKNOWN INDICATION
     Dosage: 200 mg, 1x/day
     Route: 048
  2. PLAVIX [Suspect]
     Indication: ANGIOPATHY
     Dosage: 75 mg, 1x/day
     Route: 048
     Dates: start: 2007, end: 201206

REACTIONS (4)
  - Systemic lupus erythematosus [Not Recovered/Not Resolved]
  - Erythema [Recovered/Resolved]
  - Skin discolouration [Not Recovered/Not Resolved]
  - Off label use [Unknown]
